FAERS Safety Report 23739349 (Version 1)
Quarter: 2024Q2

REPORT INFORMATION
  Report Type: Spontaneous
  Country: CN (occurrence: CN)
  Receive Date: 20240413
  Receipt Date: 20240413
  Transmission Date: 20240715
  Serious: Yes (Other)
  Sender: FDA-Public Use
  Company Number: CN-ABBVIE-5715191

PATIENT
  Age: 34 Year
  Sex: Male
  Weight: 80 kg

DRUGS (1)
  1. PRED FORTE [Suspect]
     Active Substance: PREDNISOLONE ACETATE
     Indication: Iridocyclitis
     Dosage: TIME INTERVAL: 0.16666667 DAYS: 12 DROP
     Route: 047
     Dates: start: 20240126, end: 20240128

REACTIONS (1)
  - Injury corneal [Recovering/Resolving]

NARRATIVE: CASE EVENT DATE: 20240128
